FAERS Safety Report 4859225-3 (Version None)
Quarter: 2005Q4

REPORT INFORMATION
  Report Type: 
  Country: None (occurrence: None)
  Receive Date: 20051219
  Receipt Date: 20050928
  Transmission Date: 20060501
  Serious: No
  Sender: FDA-Public Use
  Company Number: US-GLAXOSMITHKLINE-A0576203A

PATIENT
  Age: 30 Year

DRUGS (1)
  1. NICODERM CQ [Suspect]
     Dates: start: 20050925

REACTIONS (5)
  - FEELING HOT [None]
  - FEELING JITTERY [None]
  - NAUSEA [None]
  - NIGHTMARE [None]
  - RESTLESSNESS [None]
